FAERS Safety Report 8203868-6 (Version None)
Quarter: 2012Q1

REPORT INFORMATION
  Report Type: 
  Country: None (occurrence: None)
  Receive Date: 20120227
  Receipt Date: 20111108
  Transmission Date: 20120608
  Serious: No
  Sender: FDA-Public Use
  Company Number: 340867

PATIENT
  Sex: Male

DRUGS (4)
  1. VICTOZA [Suspect]
     Indication: PRODUCT USED FOR UNKNOWN INDICATION
     Dosage: , SUBCUTANEOUS
     Route: 058
  2. APIDRA [Concomitant]
  3. LEVEMIR [Suspect]
     Indication: PRODUCT USED FOR UNKNOWN INDICATION
     Dosage: SUBCUTANEOUS
     Route: 058
  4. LANTUS [Concomitant]

REACTIONS (4)
  - ERYTHEMA [None]
  - SKIN IRRITATION [None]
  - URTICARIA [None]
  - SKIN SWELLING [None]
